FAERS Safety Report 24905201 (Version 1)
Quarter: 2025Q1

REPORT INFORMATION
  Report Type: Spontaneous
  Country: US (occurrence: None)
  Receive Date: 20250127
  Receipt Date: 20250127
  Transmission Date: 20250408
  Serious: No
  Sender: FDA-CTU
  Company Number: None

PATIENT

DRUGS (1)
  1. SPRAVATO [Suspect]
     Active Substance: ESKETAMINE

REACTIONS (5)
  - Circumstance or information capable of leading to medication error [None]
  - Wrong technique in product usage process [None]
  - Victim of abuse [None]
  - Self-destructive behaviour [None]
  - Head injury [None]
